FAERS Safety Report 21964616 (Version 1)
Quarter: 2023Q1

REPORT INFORMATION
  Report Type: Spontaneous
  Country: US (occurrence: US)
  Receive Date: 20230207
  Receipt Date: 20230207
  Transmission Date: 20230417
  Serious: No
  Sender: FDA-Public Use
  Company Number: US-PURDUE PHARMA-USA-2022-0295876

PATIENT
  Age: 57 Year
  Sex: Female
  Weight: 98.4 kg

DRUGS (1)
  1. BUPRENORPHINE [Suspect]
     Active Substance: BUPRENORPHINE
     Indication: Pain
     Dosage: 7.5 MCG/HR, WEEKLY
     Route: 062
     Dates: start: 20220812

REACTIONS (5)
  - Pruritus [Not Recovered/Not Resolved]
  - Application site bruise [Not Recovered/Not Resolved]
  - Application site burn [Not Recovered/Not Resolved]
  - Scar [Unknown]
  - Skin injury [Unknown]

NARRATIVE: CASE EVENT DATE: 20220812
